FAERS Safety Report 4672934-4 (Version None)
Quarter: 2005Q2

REPORT INFORMATION
  Report Type: 
  Country: None (occurrence: None)
  Receive Date: 20050523
  Receipt Date: 20050517
  Transmission Date: 20051028
  Serious: Yes (Hospitalization, Other)
  Sender: FDA-Public Use
  Company Number: USA-2003-0009433

PATIENT
  Age: 42 Year
  Sex: Male
  Weight: 81.6 kg

DRUGS (8)
  1. OXYCONTIN [Suspect]
     Indication: PAIN
     Dosage: 20 MG, BID, ORAL; 20 M G, TID
     Route: 048
     Dates: start: 20020101
  2. OXYCONTIN [Suspect]
     Indication: PAIN
     Dosage: 20 MG, BID, ORAL; 20 M G, TID
     Route: 048
     Dates: start: 20020901
  3. ALCOHOL (ETHANOL) [Suspect]
  4. MARIJUANA(CANNABIS) [Suspect]
  5. COCAINE(COCAINE) [Suspect]
  6. VICODIN [Suspect]
  7. NORCO [Concomitant]
  8. XANAX [Concomitant]

REACTIONS (28)
  - ALCOHOLISM [None]
  - ANXIETY [None]
  - BACK PAIN [None]
  - CERVICOBRACHIAL SYNDROME [None]
  - COLD SWEAT [None]
  - CONFUSIONAL STATE [None]
  - DELUSION [None]
  - DEPRESSED MOOD [None]
  - DEPRESSION [None]
  - DISTURBANCE IN ATTENTION [None]
  - DRUG ABUSER [None]
  - DRUG DEPENDENCE [None]
  - DRUG INEFFECTIVE [None]
  - DRUG WITHDRAWAL SYNDROME [None]
  - HALLUCINATION, AUDITORY [None]
  - INSOMNIA [None]
  - MAJOR DEPRESSION [None]
  - MALAISE [None]
  - MEMORY IMPAIRMENT [None]
  - MUSCLE SPASMS [None]
  - MUSCLE TWITCHING [None]
  - PAIN [None]
  - PARANOIA [None]
  - PSYCHOTIC DISORDER [None]
  - SCHIZOPHRENIA, PARANOID TYPE [None]
  - TREMOR [None]
  - WEIGHT DECREASED [None]
  - WEIGHT INCREASED [None]
